FAERS Safety Report 4355183-9 (Version None)
Quarter: 2004Q2

REPORT INFORMATION
  Report Type: 
  Country: None (occurrence: None)
  Receive Date: 20040506
  Receipt Date: 20040426
  Transmission Date: 20050107
  Serious: Yes (Hospitalization)
  Sender: FDA-Public Use
  Company Number: K200400653

PATIENT
  Age: 32 Year
  Sex: Female
  Weight: 48.1 kg

DRUGS (5)
  1. EPINEPHRINE [Suspect]
     Indication: HYPERSENSITIVITY
     Dosage: 0.3 MG, SINGLE, INTRAVENOUS
     Route: 042
     Dates: start: 20030101, end: 20030101
  2. ULRAM (TRAMADOL HYDROCHLORIDE) [Concomitant]
  3. MULTIVITAMIN (VITAMINS NOS) [Concomitant]
  4. VITAMIN E [Concomitant]
  5. EPIPEN [Concomitant]

REACTIONS (7)
  - ARTERIOSPASM CORONARY [None]
  - ATRIAL FIBRILLATION [None]
  - CHEST PAIN [None]
  - MEDICATION ERROR [None]
  - MUSCLE DISORDER [None]
  - PARALYSIS [None]
  - VENTRICULAR TACHYCARDIA [None]
